FAERS Safety Report 5060005-7 (Version None)
Quarter: 2006Q3

REPORT INFORMATION
  Report Type: 
  Country: None (occurrence: None)
  Receive Date: 20060719
  Receipt Date: 20060711
  Transmission Date: 20061208
  Serious: Yes (Death, Life-Threatening)
  Sender: FDA-Public Use
  Company Number: 2006JP000812

PATIENT
  Age: 56 Year
  Sex: Male
  Weight: 61 kg

DRUGS (14)
  1. PROGRAF [Suspect]
     Indication: LIVER TRANSPLANT
     Dosage: 8 MG
     Dates: start: 20040531, end: 20040708
  2. PROGRAF [Suspect]
     Indication: LIVER TRANSPLANT
     Dosage: 8 MG
     Dates: start: 20040709, end: 20040811
  3. MEDROL ACETATE [Concomitant]
  4. SOLU-MEDROL [Concomitant]
  5. PENTCILLIN (PIPERACILLIN SODIUM) INJECTION [Concomitant]
  6. FLUMARIN (FLOMOXEF SODIUM) INJECTION [Concomitant]
  7. FUNGUARD (MICAFUNGIN) INJECTION [Concomitant]
  8. EPOGIN (EPOETIN BETA) INJECTION [Concomitant]
  9. HABEKACIN (ARBEKACIN) INJECTION [Concomitant]
  10. CEFTAZIDIME [Concomitant]
  11. CARBENIN (BETAMIPRON, PANIPENEM) INJECTION [Concomitant]
  12. DENOSINE (GANCICLOVIR) INJECTION [Concomitant]
  13. BAKTAR (SULFAMETHOXAZOLE, TRIMETHOPRIM) INJECTION [Concomitant]
  14. MINOCYCLINE HCL [Concomitant]

REACTIONS (16)
  - BETA 2 MICROGLOBULIN INCREASED [None]
  - BETA 2 MICROGLOBULIN URINE INCREASED [None]
  - BILE DUCT NECROSIS [None]
  - BLOOD BILIRUBIN INCREASED [None]
  - BLOOD LACTATE DEHYDROGENASE INCREASED [None]
  - CARDIAC ARREST [None]
  - CARDIAC TAMPONADE [None]
  - CATHETER RELATED COMPLICATION [None]
  - COMPLICATIONS OF TRANSPLANTED LIVER [None]
  - DEPRESSED LEVEL OF CONSCIOUSNESS [None]
  - DIALYSIS [None]
  - HISTIOCYTOSIS HAEMATOPHAGIC [None]
  - PERFORATION BILE DUCT [None]
  - POST PROCEDURAL BILE LEAK [None]
  - RESPIRATORY ARREST [None]
  - SERUM FERRITIN INCREASED [None]
